FAERS Safety Report 25116032 (Version 2)
Quarter: 2025Q2

REPORT INFORMATION
  Report Type: Report from Study
  Country: US (occurrence: US)
  Receive Date: 20250325
  Receipt Date: 20250415
  Transmission Date: 20250717
  Serious: Yes (Hospitalization, Other)
  Sender: ABBVIE
  Company Number: US-ABBVIE-6187286

PATIENT
  Age: 54 Year
  Sex: Female

DRUGS (1)
  1. RINVOQ [Suspect]
     Active Substance: UPADACITINIB
     Indication: Crohn^s disease
     Route: 048
     Dates: start: 20250205, end: 20250310

REACTIONS (7)
  - Intestinal sepsis [Recovering/Resolving]
  - Liver injury [Not Recovered/Not Resolved]
  - Myocardial infarction [Recovering/Resolving]
  - Colitis [Unknown]
  - Hypotension [Unknown]
  - Stress [Recovering/Resolving]
  - Hepatic enzyme increased [Not Recovered/Not Resolved]

NARRATIVE: CASE EVENT DATE: 20250101
